FAERS Safety Report 13317080 (Version 2)
Quarter: 2017Q2

REPORT INFORMATION
  Report Type: Spontaneous
  Country: US (occurrence: US)
  Receive Date: 20170308
  Receipt Date: 20170420
  Transmission Date: 20170830
  Serious: Yes (Hospitalization)
  Sender: FDA-Public Use
  Company Number: US-ASTRAZENECA-2017SE23215

PATIENT
  Age: 58 Year
  Sex: Male
  Weight: 97.5 kg

DRUGS (24)
  1. AMLODIPINE [Concomitant]
     Active Substance: AMLODIPINE BESYLATE
     Indication: BLOOD PRESSURE ABNORMAL
     Route: 048
  2. LOSARTAN. [Concomitant]
     Active Substance: LOSARTAN
     Indication: HEART RATE
  3. MAGNESIUM [Concomitant]
     Active Substance: MAGNESIUM
     Indication: ASTHENIA
     Route: 048
  4. BRILINTA [Suspect]
     Active Substance: TICAGRELOR
     Indication: STENT PLACEMENT
     Route: 048
     Dates: start: 201611
  5. AMLODIPINE [Concomitant]
     Active Substance: AMLODIPINE BESYLATE
     Indication: HEART RATE
     Route: 048
  6. ASPIRIN. [Concomitant]
     Active Substance: ASPIRIN
     Route: 048
  7. PLAVIX [Suspect]
     Active Substance: CLOPIDOGREL BISULFATE
     Route: 065
  8. VITAMIN D3 [Concomitant]
     Active Substance: CHOLECALCIFEROL
     Indication: SUPPLEMENTATION THERAPY
     Route: 048
  9. ATENOLOL. [Suspect]
     Active Substance: ATENOLOL
     Indication: HEART RATE ABNORMAL
     Route: 048
  10. NEXIUM [Suspect]
     Active Substance: ESOMEPRAZOLE MAGNESIUM
     Indication: DYSPEPSIA
     Route: 048
  11. LOSARTAN. [Concomitant]
     Active Substance: LOSARTAN
     Indication: HEART RATE
  12. ATENOLOL. [Suspect]
     Active Substance: ATENOLOL
     Indication: HEART RATE ABNORMAL
     Route: 048
     Dates: start: 1987
  13. ATENOLOL. [Suspect]
     Active Substance: ATENOLOL
     Indication: BLOOD PRESSURE ABNORMAL
     Route: 048
     Dates: start: 1987
  14. ARTIFICIAL TEARS [Concomitant]
     Active Substance: GLYCERIN\HYPROMELLOSES\POLYETHYLENE GLYCOL 400
     Indication: CATARACT OPERATION
     Dosage: UNKNOWN
     Route: 048
  15. PROBIOTICS [Concomitant]
     Active Substance: PROBIOTICS NOS
     Indication: ABDOMINAL DISCOMFORT
     Dosage: 4X BY COSTCO ONE TABLET DAILY AFTER DINNER.
     Route: 048
  16. ATENOLOL. [Suspect]
     Active Substance: ATENOLOL
     Indication: BLOOD PRESSURE ABNORMAL
     Route: 048
  17. ATENOLOL. [Suspect]
     Active Substance: ATENOLOL
     Indication: BLOOD PRESSURE ABNORMAL
     Route: 048
  18. CRESTOR [Suspect]
     Active Substance: ROSUVASTATIN CALCIUM
     Indication: BLOOD TRIGLYCERIDES INCREASED
     Route: 048
     Dates: start: 201611
  19. LOSARTAN. [Concomitant]
     Active Substance: LOSARTAN
     Indication: HEART RATE
     Dates: start: 2011
  20. MAGNESIUM [Concomitant]
     Active Substance: MAGNESIUM
     Indication: ASTHENIA
     Route: 048
  21. ATENOLOL. [Suspect]
     Active Substance: ATENOLOL
     Indication: HEART RATE ABNORMAL
     Route: 048
  22. CRESTOR [Suspect]
     Active Substance: ROSUVASTATIN CALCIUM
     Indication: BLOOD TRIGLYCERIDES INCREASED
     Route: 048
  23. BRILINTA [Suspect]
     Active Substance: TICAGRELOR
     Indication: STENT PLACEMENT
     Route: 048
     Dates: start: 201611
  24. ARTIFICIAL TEARS [Concomitant]
     Active Substance: GLYCERIN\HYPROMELLOSES\POLYETHYLENE GLYCOL 400
     Indication: RETINAL DISORDER
     Dosage: UNKNOWN
     Route: 048

REACTIONS (35)
  - Gait disturbance [Unknown]
  - Lymphadenopathy [Unknown]
  - Dyspnoea [Recovered/Resolved]
  - Diarrhoea [Unknown]
  - Intentional product use issue [Unknown]
  - Pyrexia [Recovered/Resolved]
  - Glucose tolerance impaired [Unknown]
  - Malaise [Unknown]
  - Sinus disorder [Unknown]
  - Nodule [Unknown]
  - Gingival pain [Unknown]
  - Feeling abnormal [Unknown]
  - Intentional product misuse [Unknown]
  - Cataract [Unknown]
  - Weight decreased [Recovered/Resolved]
  - Hypersensitivity [Unknown]
  - Pain in extremity [Unknown]
  - Retinal disorder [Unknown]
  - Lymph node pain [Unknown]
  - Chest pain [Unknown]
  - Hyperhidrosis [Recovered/Resolved]
  - Blood triglycerides increased [Unknown]
  - Back pain [Unknown]
  - Waist circumference increased [Unknown]
  - Chills [Recovered/Resolved]
  - Drug hypersensitivity [Unknown]
  - Infection [Unknown]
  - Fall [Unknown]
  - Blood pressure increased [Unknown]
  - Hypoaesthesia [Recovered/Resolved]
  - Epididymitis [Recovered/Resolved]
  - Balance disorder [Unknown]
  - Amnesia [Recovered/Resolved]
  - Heart rate decreased [Recovered/Resolved]
  - Off label use [Unknown]

NARRATIVE: CASE EVENT DATE: 1993
